FAERS Safety Report 18261012 (Version 1)
Quarter: 2020Q3

REPORT INFORMATION
  Report Type: Spontaneous
  Country: FR (occurrence: FR)
  Receive Date: 20200914
  Receipt Date: 20200914
  Transmission Date: 20201103
  Serious: Yes (Other)
  Sender: FDA-Public Use
  Company Number: FR-TEVA-2020-FR-1826189

PATIENT
  Age: 68 Year
  Sex: Male

DRUGS (5)
  1. METHOTREXATE. [Suspect]
     Active Substance: METHOTREXATE
     Route: 042
     Dates: start: 20200406, end: 20200406
  2. TAZOCILLINE 4 G/500 MG, POUDRE POUR SOLUTION POUR PERFUSION [Suspect]
     Active Substance: PIPERACILLIN SODIUM\TAZOBACTAM SODIUM
     Indication: OPPORTUNISTIC INFECTION PROPHYLAXIS
     Route: 042
     Dates: start: 20200407, end: 20200410
  3. CYTARABINE. [Suspect]
     Active Substance: CYTARABINE
     Indication: ACUTE LYMPHOCYTIC LEUKAEMIA
     Route: 037
     Dates: start: 20200406, end: 20200406
  4. L?ASPARAGINE [Suspect]
     Active Substance: ASPARAGINE
     Indication: ACUTE LYMPHOCYTIC LEUKAEMIA
     Dosage: 10000/M2
     Route: 042
     Dates: start: 20200407, end: 20200407
  5. METHOTREXATE. [Suspect]
     Active Substance: METHOTREXATE
     Indication: ACUTE LYMPHOCYTIC LEUKAEMIA
     Route: 037
     Dates: start: 20200406, end: 20200406

REACTIONS (1)
  - Acute kidney injury [Recovered/Resolved]

NARRATIVE: CASE EVENT DATE: 20200408
